FAERS Safety Report 20208734 (Version 1)
Quarter: 2021Q4

REPORT INFORMATION
  Report Type: Spontaneous
  Country: US (occurrence: US)
  Receive Date: 20211220
  Receipt Date: 20211220
  Transmission Date: 20220304
  Serious: Yes (Other)
  Sender: FDA-Public Use
  Company Number: US-TEVA-2021-US-1989288

PATIENT
  Age: 48 Year
  Sex: Male

DRUGS (1)
  1. DIAZEPAM [Suspect]
     Active Substance: DIAZEPAM
     Indication: Anxiety
     Dosage: 20 MILLIGRAM DAILY;
     Route: 065
     Dates: start: 202111

REACTIONS (7)
  - Suicidal ideation [Unknown]
  - Anger [Unknown]
  - Tremor [Unknown]
  - Heart rate irregular [Unknown]
  - Anxiety [Unknown]
  - Drug ineffective [Unknown]
  - Product taste abnormal [Unknown]

NARRATIVE: CASE EVENT DATE: 20211201
